FAERS Safety Report 8809030 (Version 1)
Quarter: 2012Q4

REPORT INFORMATION
  Report Type: Spontaneous
  Country: US (occurrence: None)
  Receive Date: 20120921
  Receipt Date: 20120921
  Transmission Date: 20130627
  Serious: Yes (Death, Hospitalization)
  Sender: FDA-Public Use
  Company Number: None

PATIENT
  Age: 69 Year
  Sex: Male
  Weight: 111.9 kg

DRUGS (11)
  1. TORISEL [Suspect]
     Indication: PROSTATE CANCER
     Route: 042
     Dates: start: 20120614, end: 20120827
  2. LORATADINE [Concomitant]
  3. DIPHENHYDRAMINE [Concomitant]
  4. AMITRIPTYLINE [Concomitant]
  5. ENOXAPARIN [Concomitant]
  6. FUROSEMIDE [Concomitant]
  7. NOPALINA [Concomitant]
  8. HYDROCODONE [Concomitant]
  9. CA++ [Concomitant]
  10. FLOMAX [Concomitant]
  11. METOPROLOL [Concomitant]

REACTIONS (2)
  - Cerebral haemorrhage [None]
  - Coma [None]
